FAERS Safety Report 7235947 (Version 2)
Quarter: 2012Q4

REPORT INFORMATION
  Report Type: 
  Country: SE (occurrence: SE)
  Receive Date: 20100104
  Receipt Date: 20121120
  Transmission Date: 20130627
  Serious: Yes (Hospitalization)
  Sender: FDA-Public Use
  Company Number: SE-PFIZER INC-2009312355

PATIENT
  Age: 76 Year
  Sex: Female

DRUGS (7)
  1. NORVASC [Suspect]
     Indication: HYPERTENSION
     Dosage: 10-20 mg daily
     Route: 048
     Dates: start: 200908
  2. TENORMIN [Concomitant]
     Dosage: 100 mg, 1x/day
     Dates: start: 1992
  3. TENORMIN [Concomitant]
     Dosage: 25 mg, 3x/day
  4. TROMBYL [Concomitant]
     Dosage: UNK
  5. ETALPHA [Concomitant]
     Dosage: UNK
  6. CALCICHEW [Concomitant]
     Dosage: UNK
  7. ATACAND [Concomitant]
     Dosage: UNK

REACTIONS (4)
  - Unevaluable event [Not Recovered/Not Resolved]
  - Oedema peripheral [Recovered/Resolved]
  - Joint swelling [Recovered/Resolved]
  - Swelling face [Recovered/Resolved]
